FAERS Safety Report 7433742-4 (Version None)
Quarter: 2011Q2

REPORT INFORMATION
  Report Type: 
  Country: None (occurrence: None)
  Receive Date: 20110424
  Receipt Date: 20110419
  Transmission Date: 20111010
  Serious: No
  Sender: FDA-Public Use
  Company Number: US-B.I. PHARMACEUTICALS,INC./RIDGEFIELD-2011-BP-03062BP

PATIENT
  Age: 83 Year
  Sex: Female

DRUGS (7)
  1. LEVODOPA [Concomitant]
     Indication: RESTLESS LEGS SYNDROME
  2. TOPROL-XL [Concomitant]
     Indication: HYPERTENSION
  3. PREDNISONE [Concomitant]
     Indication: RASH
  4. MIRAPEX [Concomitant]
     Indication: RESTLESS LEGS SYNDROME
  5. MULTAQ [Concomitant]
     Indication: ATRIAL FIBRILLATION
  6. PRADAXA [Suspect]
     Indication: ATRIAL FIBRILLATION
     Dosage: 300 MG
     Route: 048
     Dates: start: 20110101
  7. CRESTOR [Concomitant]
     Indication: BLOOD CHOLESTEROL INCREASED

REACTIONS (2)
  - BLOOD GLUCOSE FLUCTUATION [None]
  - BLOOD GLUCOSE INCREASED [None]
